FAERS Safety Report 18770974 (Version 1)
Quarter: 2021Q1

REPORT INFORMATION
  Report Type: Spontaneous
  Country: US (occurrence: US)
  Receive Date: 20210121
  Receipt Date: 20210121
  Transmission Date: 20210419
  Serious: Yes (Other)
  Sender: FDA-Public Use
  Company Number: US-TEIKOKU PHARMA USA-TPU2021-00027

PATIENT
  Age: 59 Year
  Sex: Female
  Weight: 124.85 kg

DRUGS (31)
  1. CYCLOBENZAPRINE. [Concomitant]
     Active Substance: CYCLOBENZAPRINE
  2. VOLTAREN [Concomitant]
     Active Substance: DICLOFENAC SODIUM
  3. COLACE [Concomitant]
     Active Substance: DOCUSATE SODIUM
  4. IMITREX [Concomitant]
     Active Substance: SUMATRIPTAN SUCCINATE
     Indication: MIGRAINE
  5. LINZESS [Concomitant]
     Active Substance: LINACLOTIDE
  6. LOSARTIN HCT 100?12.5 [Concomitant]
  7. MEGA MULTI VITAMIN FOR WOMAN 50+ [Concomitant]
  8. MIRALAX [Concomitant]
     Active Substance: POLYETHYLENE GLYCOL 3350
  9. SINGULAIR [Concomitant]
     Active Substance: MONTELUKAST SODIUM
  10. ZYRTEC [Concomitant]
     Active Substance: CETIRIZINE HYDROCHLORIDE
  11. ALBUTEROL. [Concomitant]
     Active Substance: ALBUTEROL
     Dosage: 2 PUFFS EVERY 6HRS AS NEEDED
  12. SYMBACORT GENERIC [Concomitant]
     Dosage: 160?4.5 MCG/HCT 2 PUFFS TRICE A DAY
  13. GAS?X [Concomitant]
     Active Substance: DIMETHICONE
  14. ZOLOFT [Concomitant]
     Active Substance: SERTRALINE HYDROCHLORIDE
  15. BENADRYL [Concomitant]
     Active Substance: DIPHENHYDRAMINE HYDROCHLORIDE
  16. BUTRAN PATCH GENERIC [Concomitant]
  17. LOVASTATIN. [Concomitant]
     Active Substance: LOVASTATIN
  18. TYLENOL ARTHRITIS PAIN [Concomitant]
     Active Substance: ACETAMINOPHEN
  19. LIDOCAINE PATCH [Suspect]
     Active Substance: LIDOCAINE
     Indication: BACK PAIN
     Route: 061
  20. LASIX [Concomitant]
     Active Substance: FUROSEMIDE
  21. VITAMIN C [Concomitant]
     Active Substance: ASCORBIC ACID
  22. MELATONIN [Concomitant]
     Active Substance: MELATONIN
  23. POTASSIUM CHLORIDE ER [Concomitant]
     Active Substance: POTASSIUM CHLORIDE
  24. LIDOCAINE PATCH [Suspect]
     Active Substance: LIDOCAINE
     Indication: ARTHRALGIA
  25. ARMOUR THYROID [Concomitant]
     Active Substance: THYROID, PORCINE
  26. CLINDAMYCIN. [Concomitant]
     Active Substance: CLINDAMYCIN
     Dosage: IN ARMPIT AND GROIN
  27. CLONAZEPAME [Concomitant]
  28. OMEGA KRILL OIL [Concomitant]
  29. PREVACID [Concomitant]
     Active Substance: LANSOPRAZOLE
  30. LUTEIN [Concomitant]
     Active Substance: LUTEIN
  31. SYSTANE (HYPROMELLOSE 2910 (4000 MPA.S)) [Concomitant]
     Active Substance: HYPROMELLOSE 2910 (4000 MPA.S)
     Indication: DRY EYE

REACTIONS (10)
  - Neuroprosthesis implantation [Recovered/Resolved]
  - Osteoarthritis [Unknown]
  - Spinal operation [Unknown]
  - Spinal osteoarthritis [Unknown]
  - Arthritis [Unknown]
  - Knee operation [Unknown]
  - Migraine [Unknown]
  - Carpal tunnel syndrome [Unknown]
  - Memory impairment [Unknown]
  - Surgery [Unknown]

NARRATIVE: CASE EVENT DATE: 2014
